FAERS Safety Report 18417357 (Version 1)
Quarter: 2020Q4

REPORT INFORMATION
  Report Type: Spontaneous
  Country: US (occurrence: US)
  Receive Date: 20201022
  Receipt Date: 20201022
  Transmission Date: 20210114
  Serious: No
  Sender: FDA-Public Use
  Company Number: 2020SGN02523

PATIENT
  Sex: Female

DRUGS (4)
  1. TUKYSA [Suspect]
     Active Substance: TUCATINIB
     Dosage: 300MG IN AM, 150MG IN PM
  2. HERCEPTIN [Suspect]
     Active Substance: TRASTUZUMAB
     Indication: BREAST CANCER FEMALE
  3. TUKYSA [Suspect]
     Active Substance: TUCATINIB
     Dosage: 1 DF, QD
  4. TUKYSA [Suspect]
     Active Substance: TUCATINIB
     Indication: BREAST CANCER FEMALE
     Dosage: UNK, BID

REACTIONS (5)
  - Feeling abnormal [Unknown]
  - Liver disorder [Unknown]
  - Diarrhoea [Recovered/Resolved]
  - Epistaxis [Unknown]
  - Product dose omission issue [Unknown]
